FAERS Safety Report 8581479-0 (Version None)
Quarter: 2012Q3

REPORT INFORMATION
  Report Type: 
  Country: None (occurrence: None)
  Receive Date: 20120809
  Receipt Date: 20120801
  Transmission Date: 20120928
  Serious: Yes (Other)
  Sender: FDA-Public Use
  Company Number: JP-ABBOTT-99H-087-0083766-00

PATIENT
  Age: 63 Year
  Sex: Female
  Weight: 49 kg

DRUGS (12)
  1. HYDROXYZINE [Concomitant]
     Indication: ANAESTHETIC PREMEDICATION
     Route: 030
     Dates: start: 19971001, end: 19971001
  2. ISOFLURANE [Suspect]
     Indication: HIP ARTHROPLASTY
     Dates: start: 19971001, end: 19971001
  3. BROTIZOLAM [Concomitant]
     Indication: ANAESTHETIC PREMEDICATION
     Route: 048
     Dates: start: 19971001, end: 19971001
  4. MEPIVACAINE HCL [Concomitant]
     Indication: ANAESTHESIA
     Route: 050
     Dates: start: 19940101, end: 19940101
  5. ATROPINE [Concomitant]
     Indication: ANAESTHETIC PREMEDICATION
     Route: 030
     Dates: start: 19971001, end: 19971001
  6. ISOFLURANE [Suspect]
     Indication: GASTRECTOMY
     Route: 065
     Dates: start: 19940101, end: 19940101
  7. VECURONIUM BROMIDE [Concomitant]
     Indication: INDUCTION OF ANAESTHESIA
     Route: 065
     Dates: start: 19940101, end: 19971001
  8. LIDOCAINE [Concomitant]
     Indication: ANAESTHETIC PREMEDICATION
     Route: 050
     Dates: start: 19971001, end: 19971001
  9. MIDAZOLAM [Concomitant]
     Indication: INDUCTION OF ANAESTHESIA
     Route: 065
     Dates: start: 19971001, end: 19971001
  10. THIAMYLAL [Concomitant]
     Indication: INDUCTION OF ANAESTHESIA
     Route: 065
     Dates: start: 19940101, end: 19940101
  11. NITROUS OXIDE [Concomitant]
     Indication: MAINTENANCE OF ANAESTHESIA
     Route: 065
     Dates: start: 19940101, end: 19971001
  12. OXYGEN [Concomitant]
     Indication: MAINTENANCE OF ANAESTHESIA
     Route: 065
     Dates: start: 19940101, end: 19971001

REACTIONS (3)
  - SINUS BRADYCARDIA [None]
  - SINUS ARREST [None]
  - SICK SINUS SYNDROME [None]
